FAERS Safety Report 15536129 (Version 1)
Quarter: 2018Q4

REPORT INFORMATION
  Report Type: Spontaneous
  Country: SI (occurrence: SI)
  Receive Date: 20181022
  Receipt Date: 20181022
  Transmission Date: 20190205
  Serious: Yes (Hospitalization)
  Sender: FDA-Public Use
  Company Number: SI-PROVELL PHARMACEUTICALS-2056521

PATIENT
  Age: 55 Year
  Sex: Female

DRUGS (9)
  1. LEVOSIMENDAN [Suspect]
     Active Substance: LEVOSIMENDAN
  2. EUTHYROX [Suspect]
     Active Substance: LEVOTHYROXINE SODIUM
     Indication: PRODUCT USED FOR UNKNOWN INDICATION
     Route: 065
  3. BISOPROLOL [Suspect]
     Active Substance: BISOPROLOL
  4. BISOPROLOL [Suspect]
     Active Substance: BISOPROLOL
  5. FERRIC CARBOXYMALTOSE [Suspect]
     Active Substance: FERRIC CARBOXYMALTOSE
  6. PERINDOPRIL [Suspect]
     Active Substance: PERINDOPRIL
  7. ENTRESTO [Suspect]
     Active Substance: SACUBITRIL\VALSARTAN
     Route: 065
  8. PERINDOPRIL [Suspect]
     Active Substance: PERINDOPRIL
  9. ACETYLSALICYLIC ACID [Suspect]
     Active Substance: ASPIRIN

REACTIONS (7)
  - Glomerular filtration rate decreased [Unknown]
  - Blood creatinine increased [Unknown]
  - Blood pressure decreased [Unknown]
  - Cardiac failure chronic [Not Recovered/Not Resolved]
  - Contraindicated product administered [Unknown]
  - Infection [Unknown]
  - Prohormone brain natriuretic peptide increased [Unknown]
